FAERS Safety Report 14138202 (Version 1)
Quarter: 2017Q4

REPORT INFORMATION
  Report Type: Spontaneous
  Country: US (occurrence: US)
  Receive Date: 20171027
  Receipt Date: 20171027
  Transmission Date: 20180321
  Serious: No
  Sender: FDA-Public Use
  Company Number: US-ROCHE-1967384

PATIENT
  Age: 43 Year
  Sex: Female
  Weight: 57.66 kg

DRUGS (1)
  1. ALECENSA [Suspect]
     Active Substance: ALECTINIB HYDROCHLORIDE
     Indication: NON-SMALL CELL LUNG CANCER
     Dosage: 4 PILLS WITH BREAKFAST AND 4 PILLS AFTER DINNER
     Route: 048
     Dates: start: 20170713

REACTIONS (5)
  - Fatigue [Recovered/Resolved]
  - Emotional disorder [Recovered/Resolved]
  - Product storage error [Unknown]
  - No adverse event [Unknown]
  - Back pain [Recovered/Resolved with Sequelae]

NARRATIVE: CASE EVENT DATE: 20170713
